FAERS Safety Report 8195775-2 (Version None)
Quarter: 2012Q1

REPORT INFORMATION
  Report Type: 
  Country: None (occurrence: None)
  Receive Date: 20120308
  Receipt Date: 20120307
  Transmission Date: 20120608
  Serious: Yes (Hospitalization, Other)
  Sender: FDA-Public Use
  Company Number: PT-ROCHE-1019398

PATIENT
  Sex: Female

DRUGS (3)
  1. MABTHERA [Suspect]
     Indication: JUVENILE ARTHRITIS
     Route: 042
     Dates: start: 20080101, end: 20110419
  2. METHOTREXATE [Suspect]
     Indication: JUVENILE ARTHRITIS
     Route: 030
  3. LEPICORTINOLO [Suspect]
     Indication: JUVENILE ARTHRITIS
     Route: 048

REACTIONS (3)
  - POST PROCEDURAL FISTULA [None]
  - SUBCUTANEOUS ABSCESS [None]
  - BLOOD IMMUNOGLOBULIN M DECREASED [None]
